FAERS Safety Report 5634625-2 (Version None)
Quarter: 2008Q1

REPORT INFORMATION
  Report Type: 
  Country: None (occurrence: None)
  Receive Date: 20080221
  Receipt Date: 20080221
  Transmission Date: 20080703
  Serious: Yes (Hospitalization)
  Sender: FDA-Public Use
  Company Number: None

PATIENT
  Age: 63 Year
  Sex: Male

DRUGS (1)
  1. CHLORPROMAZINE [Suspect]
     Indication: HICCUPS
     Dosage: 10MG  ONCE  PO
     Route: 048
     Dates: start: 20071101, end: 20071101

REACTIONS (3)
  - HYPOTENSION [None]
  - LETHARGY [None]
  - MENTAL STATUS CHANGES [None]
